FAERS Safety Report 11827216 (Version 1)
Quarter: 2015Q4

REPORT INFORMATION
  Report Type: Other
  Country: GB (occurrence: GB)
  Receive Date: 20151211
  Receipt Date: 20151211
  Transmission Date: 20160305
  Serious: Yes (Other)
  Sender: FDA-Public Use
  Company Number: GB-MYLANLABS-2015M1043273

PATIENT

DRUGS (12)
  1. MORPHGESIC [Concomitant]
     Dosage: 30 MG, UNK
     Route: 048
  2. QUETIAPINE [Concomitant]
     Active Substance: QUETIAPINE
  3. CLONIDINE. [Suspect]
     Active Substance: CLONIDINE
     Dosage: 25 MG, TID
     Route: 048
     Dates: start: 20151117, end: 20151117
  4. CITALOPRAM [Concomitant]
     Active Substance: CITALOPRAM HYDROBROMIDE
     Dosage: 40 MG, QD
     Route: 048
  5. QUETIAPINE [Concomitant]
     Active Substance: QUETIAPINE
     Indication: PSYCHOTIC DISORDER
     Dosage: 25 MG, UNK
     Route: 048
  6. ORAMORPH [Concomitant]
     Active Substance: MORPHINE SULFATE
     Dosage: 5 ML, Q6H
     Route: 048
  7. PHENERGAN [Suspect]
     Active Substance: PROMETHAZINE HYDROCHLORIDE
     Dosage: 25 G, QD
     Route: 048
     Dates: start: 20151117, end: 20151117
  8. SUMATRIPTAN. [Concomitant]
     Active Substance: SUMATRIPTAN
     Indication: MIGRAINE
     Dosage: 20 MG, UNK
     Route: 045
  9. METOCLOPRAMIDE. [Concomitant]
     Active Substance: METOCLOPRAMIDE
     Dosage: 10 MG, TID
     Route: 048
  10. GABAPENTIN. [Suspect]
     Active Substance: GABAPENTIN
     Dosage: 100 MG, TID
     Route: 048
     Dates: start: 20151117, end: 20151117
  11. MATRIFEN [Concomitant]
     Active Substance: FENTANYL
     Indication: PAIN
     Dosage: 12 ?G, Q3D (APPLY 1 PATCH EVERY 3 DAYS.)
  12. LEVOTHYROXINE. [Concomitant]
     Active Substance: LEVOTHYROXINE
     Indication: HYPOTHYROIDISM
     Dosage: 100 ?G, QD
     Route: 048

REACTIONS (1)
  - Anaphylactic reaction [Recovering/Resolving]

NARRATIVE: CASE EVENT DATE: 20151117
